FAERS Safety Report 4321142-5 (Version None)
Quarter: 2004Q1

REPORT INFORMATION
  Report Type: 
  Country: None (occurrence: None)
  Receive Date: 20040315
  Receipt Date: 20031117
  Transmission Date: 20041129
  Serious: Yes (Hospitalization)
  Sender: FDA-Public Use
  Company Number: US_031198914

PATIENT
  Age: 68 Year
  Sex: Female

DRUGS (2)
  1. GEMZAR [Suspect]
     Indication: NEOPLASM RECURRENCE
     Dosage: 800 MG/WEEK
     Dates: start: 20030825, end: 20031001
  2. GEMZAR [Suspect]
     Indication: OVARIAN CANCER
     Dosage: 800 MG/WEEK
     Dates: start: 20030825, end: 20031001

REACTIONS (2)
  - CHILLS [None]
  - DYSPNOEA [None]
